FAERS Safety Report 10411623 (Version 1)
Quarter: 2014Q3

REPORT INFORMATION
  Report Type: Spontaneous
  Country: US (occurrence: US)
  Receive Date: 20140827
  Receipt Date: 20140827
  Transmission Date: 20150326
  Serious: No
  Sender: FDA-Public Use
  Company Number: US-AMGEN-USASP2014063980

PATIENT
  Age: 39 Year
  Sex: Female

DRUGS (2)
  1. DUREZOL [Concomitant]
     Active Substance: DIFLUPREDNATE
     Indication: IRITIS
     Dosage: UNK
  2. ENBREL [Suspect]
     Active Substance: ETANERCEPT
     Indication: IRITIS
     Dosage: UNK
     Route: 065
     Dates: start: 20140813

REACTIONS (4)
  - Myalgia [Unknown]
  - Hypoaesthesia [Not Recovered/Not Resolved]
  - Pain [Not Recovered/Not Resolved]
  - Injection site pain [Recovered/Resolved]

NARRATIVE: CASE EVENT DATE: 20140819
